FAERS Safety Report 8471461 (Version 2)
Quarter: 2012Q4

REPORT INFORMATION
  Report Type: Report from Study
  Country: GB (occurrence: GB)
  Receive Date: 20120322
  Receipt Date: 20121203
  Transmission Date: 20130627
  Serious: Yes (Disabling)
  Sender: FDA-Public Use
  Company Number: GB-CELGENEUS-167-20785-12030716

PATIENT
  Age: 52 Year
  Sex: Female

DRUGS (3)
  1. THALIDOMIDE [Suspect]
     Indication: MULTIPLE MYELOMA
     Dosage: 100 Milligram
     Route: 048
     Dates: start: 20111123
  2. CYCLOPHOSPHAMIDE [Suspect]
     Indication: MULTIPLE MYELOMA
     Dosage: 500 Milligram
     Route: 048
     Dates: start: 20111123
  3. DEXAMETHASONE [Suspect]
     Indication: MULTIPLE MYELOMA
     Dosage: 20 Milligram
     Route: 048
     Dates: start: 20111123

REACTIONS (1)
  - Melanocytic naevus [Recovering/Resolving]
